FAERS Safety Report 16000268 (Version 2)
Quarter: 2019Q1

REPORT INFORMATION
  Report Type: Report from Study
  Country: CN (occurrence: CN)
  Receive Date: 20190225
  Receipt Date: 20190313
  Transmission Date: 20190418
  Serious: Yes (Death, Other)
  Sender: FDA-Public Use
  Company Number: CN-INCYTE CORPORATION-2019IN001336

PATIENT

DRUGS (2)
  1. JAKAVI [Suspect]
     Active Substance: RUXOLITINIB
     Dosage: 15 MG, BID
     Route: 048
     Dates: start: 201809
  2. JAKAVI [Suspect]
     Active Substance: RUXOLITINIB
     Indication: PRIMARY MYELOFIBROSIS
     Dosage: 20 MG, BID
     Route: 048
     Dates: start: 20170824

REACTIONS (7)
  - Full blood count decreased [Unknown]
  - Bacterial infection [Fatal]
  - Nasopharyngitis [Unknown]
  - Respiratory failure [Fatal]
  - Splenomegaly [Unknown]
  - Lung infection [Fatal]
  - Mouth ulceration [Unknown]
